FAERS Safety Report 8782184 (Version 1)
Quarter: 2012Q4

REPORT INFORMATION
  Report Type: 
  Country: US (occurrence: US)
  Receive Date: 20120913
  Receipt Date: 20120913
  Transmission Date: 20130627
  Serious: No
  Sender: FDA-Public Use
  Company Number: US-VERTEX PHARMACEUTICAL INC.-2012-019923

PATIENT
  Age: 54 Year
  Sex: Male
  Weight: 129 kg

DRUGS (4)
  1. INCIVEK [Suspect]
     Indication: HEPATITIS C
     Dosage: 750 mg, tid
     Route: 048
     Dates: start: 20120810
  2. RIBAVIRIN [Concomitant]
     Indication: HEPATITIS C
     Dosage: 1000 mg, qd
     Route: 048
     Dates: start: 20120810
  3. PEGASYS [Concomitant]
     Indication: HEPATITIS C
     Dosage: UNK
     Route: 058
     Dates: start: 20120809
  4. UNSPECIFIED PSYCHIATRIC MEDICATION [Concomitant]
     Indication: DEPRESSION
     Dosage: UNK

REACTIONS (1)
  - Drug dose omission [Recovered/Resolved]
